FAERS Safety Report 7871925-X (Version None)
Quarter: 2011Q4

REPORT INFORMATION
  Report Type: 
  Country: None (occurrence: None)
  Receive Date: 20111029
  Receipt Date: 20110310
  Transmission Date: 20120403
  Serious: No
  Sender: FDA-Public Use
  Company Number: US-AMGEN-USASP2011013398

PATIENT
  Sex: Female
  Weight: 68.934 kg

DRUGS (14)
  1. PREVACID [Concomitant]
     Dosage: 30 MG, UNK
  2. METROGEL [Concomitant]
  3. VITAMIN B-12 [Concomitant]
  4. ENBREL [Suspect]
     Indication: PSORIASIS
     Dosage: 50 MG, 2 TIMES/WK
  5. ADVAIR DISKUS 100/50 [Concomitant]
  6. ULTRA B [Concomitant]
  7. PAMELOR [Concomitant]
     Dosage: 25 MG, UNK
  8. PROAIR HFA [Concomitant]
  9. MULTI TABS [Concomitant]
  10. DAYPRO [Concomitant]
     Dosage: 600 MG, UNK
  11. NEURONTIN [Concomitant]
     Dosage: 100 MG, UNK
  12. SYNTHROID [Concomitant]
  13. GABAPENTIN [Concomitant]
     Dosage: 100 MG, UNK
  14. CALCIUM [Concomitant]

REACTIONS (2)
  - PSORIASIS [None]
  - THERAPEUTIC RESPONSE DECREASED [None]
